FAERS Safety Report 7958186-8 (Version None)
Quarter: 2011Q4

REPORT INFORMATION
  Report Type: 
  Country: None (occurrence: None)
  Receive Date: 20111205
  Receipt Date: 20111130
  Transmission Date: 20120403
  Serious: Yes (Life-Threatening, Hospitalization)
  Sender: FDA-Public Use
  Company Number: FR-ASTRAZENECA-2011SE72731

PATIENT
  Age: 78 Year
  Sex: Female

DRUGS (7)
  1. MARCAINE [Suspect]
     Dosage: ONCE/SINGLE ADMINISTRATION
     Route: 042
     Dates: start: 20110124, end: 20110124
  2. MORPHINE [Suspect]
     Route: 042
     Dates: start: 20110124, end: 20110124
  3. TRAMADOL HCL [Concomitant]
  4. IMOVANE [Concomitant]
  5. NEXIUM [Concomitant]
  6. VASTAREL [Concomitant]
  7. LYRICA [Concomitant]

REACTIONS (2)
  - TACHYCARDIA [None]
  - RASH [None]
